FAERS Safety Report 5841673-6 (Version None)
Quarter: 2008Q3

REPORT INFORMATION
  Report Type: 
  Country: None (occurrence: None)
  Receive Date: 20080811
  Receipt Date: 20080811
  Transmission Date: 20090109
  Serious: Yes (Disabling)
  Sender: FDA-Public Use
  Company Number: None

PATIENT
  Age: 37 Year
  Sex: Female
  Weight: 58.9676 kg

DRUGS (2)
  1. CYMBALTA [Suspect]
     Indication: DIABETES MELLITUS
     Dosage: 60MG  1 PO
     Route: 048
     Dates: start: 20080803, end: 20080810
  2. CYMBALTA [Suspect]
     Indication: FIBROMYALGIA
     Dosage: 60MG  1 PO
     Route: 048
     Dates: start: 20080803, end: 20080810

REACTIONS (6)
  - ASTHENIA [None]
  - CLONUS [None]
  - HYPERHIDROSIS [None]
  - MUSCLE SPASMS [None]
  - PAIN [None]
  - SEROTONIN SYNDROME [None]
